FAERS Safety Report 8819249 (Version 2)
Quarter: 2012Q4

REPORT INFORMATION
  Report Type: 
  Country: DE (occurrence: DE)
  Receive Date: 20121001
  Receipt Date: 20121119
  Transmission Date: 20130627
  Serious: Yes (Death, Hospitalization, Other)
  Sender: FDA-Public Use
  Company Number: DE-AMGEN-DEUSP2012061080

PATIENT
  Age: 55 Year
  Sex: Female
  Weight: 47 kg

DRUGS (2)
  1. MIMPARA [Suspect]
     Indication: HYPERPARATHYROIDISM SECONDARY
     Dosage: 30 mg, qd
     Route: 048
     Dates: start: 20120625
  2. MIMPARA [Suspect]

REACTIONS (31)
  - Death [Fatal]
  - Cervicogenic headache [Recovering/Resolving]
  - Temporal arteritis [Recovering/Resolving]
  - Psychotic disorder [Recovering/Resolving]
  - Mitral valve incompetence [Unknown]
  - Hyperkalaemia [Unknown]
  - Metabolic acidosis [Unknown]
  - Clostridium difficile colitis [Unknown]
  - Pneumonitis [Recovered/Resolved]
  - Cerebral infarction [Unknown]
  - Ischaemia [Unknown]
  - Nephrogenic anaemia [Unknown]
  - Pulmonary mass [Unknown]
  - Pneumonia [Unknown]
  - Cardiac failure [Unknown]
  - Arteriovenous fistula operation [Unknown]
  - Rhabdomyolysis [Unknown]
  - Dyspnoea [Unknown]
  - Tenderness [Recovering/Resolving]
  - Joint range of motion decreased [Unknown]
  - Hemianopia homonymous [Unknown]
  - Hyperreflexia [Unknown]
  - Hyporeflexia [Unknown]
  - Musculoskeletal discomfort [Unknown]
  - Tremor [Unknown]
  - Hypoaesthesia [Unknown]
  - Disturbance in attention [Unknown]
  - Micturition frequency decreased [Unknown]
  - Anxiety [Unknown]
  - Restlessness [Unknown]
  - Myalgia [Recovering/Resolving]
